FAERS Safety Report 16258772 (Version 3)
Quarter: 2019Q4

REPORT INFORMATION
  Report Type: Report from Study
  Country: None (occurrence: US)
  Receive Date: 20190501
  Receipt Date: 20191004
  Transmission Date: 20200122
  Serious: Yes (Hospitalization, Other)
  Sender: FDA-Public Use
  Company Number: US-ABBVIE-19S-163-2730455-00

PATIENT
  Age: 67 Year
  Sex: Male
  Weight: 77.18 kg

DRUGS (20)
  1. VITAMIN D [Concomitant]
     Active Substance: VITAMIN D NOS
     Indication: VITAMIN SUPPLEMENTATION
     Route: 065
  2. NAMENTADINE [Concomitant]
     Indication: PRODUCT USED FOR UNKNOWN INDICATION
  3. DUOPA [Suspect]
     Active Substance: CARBIDOPA\LEVODOPA
     Route: 050
     Dates: start: 20171109, end: 2017
  4. VITAMIN B12 [Concomitant]
     Active Substance: CYANOCOBALAMIN
     Indication: VITAMIN SUPPLEMENTATION
     Route: 065
  5. RITALIN [Concomitant]
     Active Substance: METHYLPHENIDATE HYDROCHLORIDE
     Indication: HYPERSOMNIA
  6. DUOPA [Suspect]
     Active Substance: CARBIDOPA\LEVODOPA
     Indication: PARKINSON^S DISEASE
     Route: 050
     Dates: start: 20171006, end: 2017
  7. CARBIDOPA LEVODOPA [Concomitant]
     Active Substance: CARBIDOPA\LEVODOPA
     Indication: PARKINSON^S DISEASE
     Route: 065
  8. WELLBUTRIN [Concomitant]
     Active Substance: BUPROPION HYDROCHLORIDE
     Indication: DEPRESSION
     Route: 065
  9. ARICEPT [Concomitant]
     Active Substance: DONEPEZIL HYDROCHLORIDE
     Indication: DEMENTIA
  10. MAGNESIUM [Concomitant]
     Active Substance: MAGNESIUM
     Indication: MINERAL SUPPLEMENTATION
     Route: 065
  11. VITAMIN B6 [Concomitant]
     Active Substance: PYRIDOXINE HYDROCHLORIDE
     Indication: VITAMIN SUPPLEMENTATION
     Route: 065
  12. MULTIVITAMIN [Concomitant]
     Active Substance: VITAMINS
     Indication: VITAMIN SUPPLEMENTATION
  13. DUOPA [Suspect]
     Active Substance: CARBIDOPA\LEVODOPA
     Route: 050
     Dates: start: 201711, end: 201711
  14. ASPIRIN. [Concomitant]
     Active Substance: ASPIRIN
     Indication: PRODUCT USED FOR UNKNOWN INDICATION
  15. DUOPA [Suspect]
     Active Substance: CARBIDOPA\LEVODOPA
     Route: 050
     Dates: start: 2017, end: 201909
  16. DUOPA [Suspect]
     Active Substance: CARBIDOPA\LEVODOPA
     Dosage: 4-5 DAYS
     Route: 050
     Dates: start: 201909
  17. ARICEPT [Concomitant]
     Active Substance: DONEPEZIL HYDROCHLORIDE
     Indication: MEMORY IMPAIRMENT
     Route: 065
  18. ARICEPT [Concomitant]
     Active Substance: DONEPEZIL HYDROCHLORIDE
     Indication: CONFUSIONAL STATE
  19. BABY ASPIRIN [Concomitant]
     Active Substance: ASPIRIN
     Indication: PROPHYLAXIS
     Route: 065
  20. MIDODRINE [Concomitant]
     Active Substance: MIDODRINE
     Indication: PRODUCT USED FOR UNKNOWN INDICATION

REACTIONS (22)
  - Loss of consciousness [Not Recovered/Not Resolved]
  - Cough [Recovering/Resolving]
  - Fall [Recovered/Resolved]
  - Femur fracture [Unknown]
  - Musculoskeletal pain [Recovering/Resolving]
  - Immobile [Not Recovered/Not Resolved]
  - Fall [Unknown]
  - Confusional state [Not Recovered/Not Resolved]
  - Pyrexia [Recovered/Resolved]
  - Dementia [Not Recovered/Not Resolved]
  - Orthostatic hypertension [Not Recovered/Not Resolved]
  - Sedation [Recovered/Resolved]
  - Pain in extremity [Not Recovered/Not Resolved]
  - Influenza [Recovered/Resolved]
  - Fall [Not Recovered/Not Resolved]
  - Hypotension [Not Recovered/Not Resolved]
  - Haemoglobin decreased [Not Recovered/Not Resolved]
  - Cervical vertebral fracture [Recovering/Resolving]
  - Device dislocation [Unknown]
  - Nerve compression [Unknown]
  - Nerve compression [Recovering/Resolving]
  - Asthenia [Not Recovered/Not Resolved]

NARRATIVE: CASE EVENT DATE: 2019
